FAERS Safety Report 21905717 (Version 2)
Quarter: 2023Q1

REPORT INFORMATION
  Report Type: Spontaneous
  Country: US (occurrence: US)
  Receive Date: 20230124
  Receipt Date: 20230126
  Transmission Date: 20230418
  Serious: No
  Sender: FDA-Public Use
  Company Number: US-002147023-NVSC2023US011940

PATIENT
  Sex: Female

DRUGS (1)
  1. OMNITROPE [Suspect]
     Active Substance: SOMATROPIN
     Indication: Product used for unknown indication
     Dosage: 5 MG, QD (ROUTE: NEEDLE)
     Route: 065
     Dates: start: 201910

REACTIONS (3)
  - Limb discomfort [Unknown]
  - Drug dose omission by device [Unknown]
  - Device breakage [Unknown]
